FAERS Safety Report 4401162-2 (Version None)
Quarter: 2004Q3

REPORT INFORMATION
  Report Type: 
  Country: None (occurrence: None)
  Receive Date: 20040907
  Receipt Date: 20031125
  Transmission Date: 20050211
  Serious: Yes (Hospitalization)
  Sender: FDA-Public Use
  Company Number: US-BRISTOL-MYERS SQUIBB COMPANY-12444030

PATIENT
  Age: 55 Year
  Sex: Female

DRUGS (2)
  1. COUMADIN [Suspect]
  2. CLOZAPINE [Concomitant]
     Indication: SCHIZOPHRENIA
     Dosage: DOSE: 700-800 MG DAILY
     Dates: start: 20021201, end: 20031001

REACTIONS (1)
  - GASTROINTESTINAL HAEMORRHAGE [None]
